FAERS Safety Report 5150902-6 (Version None)
Quarter: 2006Q4

REPORT INFORMATION
  Report Type: 
  Country: None (occurrence: None)
  Receive Date: 20061114
  Receipt Date: 20061026
  Transmission Date: 20070319
  Serious: Yes (Death, Life-Threatening, Hospitalization)
  Sender: FDA-Public Use
  Company Number: FR-BOEHRINGER INGELHEIM PHARMACEUTICALS, INC.-2006-FF-01186FF

PATIENT
  Sex: Male

DRUGS (1)
  1. VIRAMUNE [Suspect]
     Route: 048
     Dates: start: 20060901, end: 20061023

REACTIONS (1)
  - TOXIC EPIDERMAL NECROLYSIS [None]
